FAERS Safety Report 4524069-9 (Version None)
Quarter: 2004Q4

REPORT INFORMATION
  Report Type: 
  Country: None (occurrence: None)
  Receive Date: 20041209
  Receipt Date: 20041123
  Transmission Date: 20050328
  Serious: Yes (Other)
  Sender: FDA-Public Use
  Company Number: BE-JNJFOC-20041105807

PATIENT
  Age: 24 Year
  Sex: Male

DRUGS (1)
  1. VERMOX [Suspect]
     Indication: UNEVALUABLE EVENT
     Dosage: 1 DOSE (S), IN 1 DAY, ORAL
     Route: 048

REACTIONS (4)
  - ENCEPHALITIS [None]
  - MENINGITIS ASEPTIC [None]
  - OFF LABEL USE [None]
  - PARAPLEGIA [None]
